FAERS Safety Report 23867380 (Version 1)
Quarter: 2024Q2

REPORT INFORMATION
  Report Type: Spontaneous
  Country: DE (occurrence: DE)
  Receive Date: 20240517
  Receipt Date: 20240517
  Transmission Date: 20240716
  Serious: Yes (Other)
  Sender: FDA-Public Use
  Company Number: DE-MLMSERVICE-20240326-4910098-1

PATIENT
  Age: 70 Year
  Sex: Female
  Weight: 56 kg

DRUGS (20)
  1. LACOSAMIDE [Suspect]
     Active Substance: LACOSAMIDE
     Indication: Seizure
     Dosage: 1 DOSAGE FORM, TWO TIMES A DAY
     Route: 048
  2. LACOSAMIDE [Suspect]
     Active Substance: LACOSAMIDE
     Indication: Generalised tonic-clonic seizure
  3. LEVETIRACETAM [Suspect]
     Active Substance: LEVETIRACETAM
     Indication: Seizure
     Dosage: UNK (2,5-0-2, 5-02,5-0)
     Route: 065
  4. LEVETIRACETAM [Suspect]
     Active Substance: LEVETIRACETAM
     Indication: Generalised tonic-clonic seizure
     Dosage: 1250 MILLIGRAM, TWO TIMES A DAY
     Route: 048
  5. QUETIAPINE [Suspect]
     Active Substance: QUETIAPINE
     Indication: Anxiety disorder
     Dosage: 1 DOSAGE FORM, ONCE A DAY (-0-0-1, 25 MG 0-0-1-1, 0-0-0- )
     Route: 065
     Dates: start: 2023
  6. BROMAZEPAM [Suspect]
     Active Substance: BROMAZEPAM
     Indication: Drug dependence
     Dosage: 6 MILLIGRAM, ONCE A DAY
     Route: 048
     Dates: start: 1994
  7. BROMAZEPAM [Suspect]
     Active Substance: BROMAZEPAM
     Indication: Anxiety
     Dosage: UNK (0,5-0-0, 5-00,5-0- )
     Route: 065
  8. DOXYLAMINE [Suspect]
     Active Substance: DOXYLAMINE
     Indication: Product used for unknown indication
     Dosage: 1 DOSAGE FORM, ONCE A DAY, NOT PRESCRIBED, OTC, 0-0-0-1
     Route: 048
  9. TRIMIPRAMINE [Suspect]
     Active Substance: TRIMIPRAMINE
     Indication: Antidepressant therapy
     Dosage: 1 DOSAGE FORM, 3 TIMES A DAY (1-1-1-0 1-1-1-/25 MG THREE TIMES A DAY )
     Route: 065
  10. TRIMIPRAMINE [Suspect]
     Active Substance: TRIMIPRAMINE
     Indication: Depression
  11. FOLIC ACID [Concomitant]
     Active Substance: FOLIC ACID
     Indication: Product used for unknown indication
     Dosage: 1 DOSAGE FORM, ONCE A DAY (1-0-0-0 )
     Route: 048
  12. INDAPAMIDE [Concomitant]
     Active Substance: INDAPAMIDE
     Indication: Hypertension
     Dosage: 1 DOSAGE FORM, ONCE A DAY (1-0-0-0 )
     Route: 065
  13. RAMIPRIL [Concomitant]
     Active Substance: RAMIPRIL
     Indication: Hypertension
     Dosage: 1 DOSAGE FORM, TWO TIMES A DAY (1-0-1-0 )
     Route: 048
  14. PANTOPRAZOLE [Concomitant]
     Active Substance: PANTOPRAZOLE
     Indication: Product used for unknown indication
     Dosage: 1 DOSAGE FORM, ONCE A DAY (0-0-1-0 )
     Route: 048
  15. AMLODIPINE [Concomitant]
     Active Substance: AMLODIPINE BESYLATE
     Indication: Hypertension
     Dosage: 1 DOSAGE FORM, ONCE A DAY
     Route: 048
  16. TORSEMIDE [Concomitant]
     Active Substance: TORSEMIDE
     Indication: Product used for unknown indication
     Dosage: 1 DOSAGE FORM, ONCE A DAY
     Route: 065
  17. BISOPROLOL [Concomitant]
     Active Substance: BISOPROLOL\BISOPROLOL FUMARATE
     Indication: Hypertension
     Dosage: 1 DOSAGE FORM, ONCE A DAY (1-0-0 -01 0
     Route: 048
  18. IRON [Concomitant]
     Active Substance: IRON
     Indication: Product used for unknown indication
     Dosage: 1 DOSAGE FORM, TWO TIMES A DAY (1-0-0-0 EVERY 2 DAYS )
     Route: 048
  19. APIXABAN [Concomitant]
     Active Substance: APIXABAN
     Indication: Haemorrhage
     Dosage: 1 DOSAGE FORM, TWO TIMES A DAY (1-0-1-0 )
     Route: 048
  20. CANDESARTAN [Concomitant]
     Active Substance: CANDESARTAN
     Indication: Hypertension
     Dosage: 2 DOSAGE FORM, ONCE A DAY (2-0-0-0 )
     Route: 065

REACTIONS (10)
  - Bradycardia [Unknown]
  - Delirium [Unknown]
  - Drug interaction [Unknown]
  - Apathy [Unknown]
  - Fatigue [Unknown]
  - Fall [Unknown]
  - General physical health deterioration [Unknown]
  - Gait disturbance [Unknown]
  - Somnolence [Unknown]
  - Sedation [Unknown]
